FAERS Safety Report 5187226-7 (Version None)
Quarter: 2006Q4

REPORT INFORMATION
  Report Type: 
  Country: None (occurrence: None)
  Receive Date: 20061214
  Receipt Date: 20061201
  Transmission Date: 20070319
  Serious: Yes (Other)
  Sender: FDA-Public Use
  Company Number: 2006150323

PATIENT
  Age: 17 Year
  Sex: Male
  Weight: 50 kg

DRUGS (14)
  1. MAGNEX                 (SULBACTAM, CEFOPERAZONE) [Suspect]
     Indication: LIVER DISORDER
     Dosage: SEE IMAGE
     Route: 042
     Dates: start: 20061122, end: 20061123
  2. MAGNEX                 (SULBACTAM, CEFOPERAZONE) [Suspect]
     Indication: LIVER DISORDER
     Dosage: SEE IMAGE
     Route: 042
     Dates: start: 20061124, end: 20061124
  3. MAGNEX                 (SULBACTAM, CEFOPERAZONE) [Suspect]
     Indication: LIVER DISORDER
     Dosage: SEE IMAGE
     Route: 042
     Dates: start: 20061125, end: 20061125
  4. CLINDAMYCIN PHOSPHATE [Suspect]
     Indication: LIVER DISORDER
     Dosage: SEE IMAGE
     Route: 042
     Dates: start: 20061122, end: 20061123
  5. CLINDAMYCIN PHOSPHATE [Suspect]
     Indication: LIVER DISORDER
     Dosage: SEE IMAGE
     Route: 042
     Dates: start: 20061124, end: 20061124
  6. ESOMEPRAZOLE                          (ESOMEPRAZOLE) [Concomitant]
  7. CALCIUM GLUCONATE [Concomitant]
  8. SODIUM BICARBONATE IN PLASTIC CONTAINER [Concomitant]
  9. PHYTONADIONE [Concomitant]
  10. DOPAMINE HCL [Concomitant]
  11. METRONIDAZOLE [Concomitant]
  12. DRUG (DRUG) [Concomitant]
  13. BOTROPASE                (BATROXOBIN) [Concomitant]
  14. MANNITOL [Concomitant]

REACTIONS (10)
  - CEREBRAL HAEMORRHAGE [None]
  - GRAND MAL CONVULSION [None]
  - HAEMODIALYSIS [None]
  - HEMIPARESIS [None]
  - INCISION SITE HAEMORRHAGE [None]
  - INJURY [None]
  - NERVOUS SYSTEM DISORDER [None]
  - PLATELET COUNT DECREASED [None]
  - POST PROCEDURAL COMPLICATION [None]
  - RENAL FAILURE ACUTE [None]
